FAERS Safety Report 20664173 (Version 1)
Quarter: 2022Q2

REPORT INFORMATION
  Report Type: Spontaneous
  Country: US (occurrence: None)
  Receive Date: 20220401
  Receipt Date: 20220401
  Transmission Date: 20220721
  Serious: Yes (Hospitalization, Disabling, Other)
  Sender: FDA-Public Use
  Company Number: None

PATIENT
  Age: 9 Year
  Sex: Female
  Weight: 30.15 kg

DRUGS (6)
  1. METRONIDAZOLE [Suspect]
     Active Substance: METRONIDAZOLE
     Indication: Clostridium difficile infection
     Dosage: FREQUENCY : EVERY 6 HOURS;?
     Route: 048
     Dates: start: 20220224, end: 20220228
  2. vaccum bell for pectus excavatum [Concomitant]
  3. Flinstone vitamine [Concomitant]
  4. Pediasure grow and gain [Concomitant]
  5. CLARITIN [Concomitant]
     Active Substance: LORATADINE
  6. FLONASE [Concomitant]
     Active Substance: FLUTICASONE PROPIONATE

REACTIONS (34)
  - Hypoaesthesia [None]
  - Paraesthesia [None]
  - Gait disturbance [None]
  - Neuropathy peripheral [None]
  - Abdominal pain upper [None]
  - Abdominal pain upper [None]
  - Pain [None]
  - Photopsia [None]
  - Papilloedema [None]
  - Headache [None]
  - Head discomfort [None]
  - Neck pain [None]
  - Regurgitation [None]
  - Arthralgia [None]
  - Fatigue [None]
  - Petechiae [None]
  - Nasal disorder [None]
  - Asthenia [None]
  - Trichoglossia [None]
  - Tongue discolouration [None]
  - Candida infection [None]
  - Pain in extremity [None]
  - Anorectal disorder [None]
  - Vaginal lesion [None]
  - Dysuria [None]
  - Constipation [None]
  - Proctalgia [None]
  - Back pain [None]
  - Odynophagia [None]
  - Oropharyngeal pain [None]
  - Dry eye [None]
  - Blepharospasm [None]
  - Muscle twitching [None]
  - Chromaturia [None]

NARRATIVE: CASE EVENT DATE: 20220228
